FAERS Safety Report 14967537 (Version 1)
Quarter: 2018Q2

REPORT INFORMATION
  Report Type: Spontaneous
  Country: ES (occurrence: ES)
  Receive Date: 20180604
  Receipt Date: 20180604
  Transmission Date: 20180711
  Serious: Yes (Other)
  Sender: FDA-Public Use
  Company Number: PHHY2017ES161729

PATIENT
  Age: 72 Year
  Sex: Female

DRUGS (8)
  1. PREDNISONE. [Concomitant]
     Active Substance: PREDNISONE
     Indication: NON-HODGKIN^S LYMPHOMA
     Dosage: 8 CYCLICAL
     Route: 065
     Dates: start: 201506, end: 201512
  2. CYCLOPHOSPHAMIDE. [Concomitant]
     Active Substance: CYCLOPHOSPHAMIDE
     Indication: NON-HODGKIN^S LYMPHOMA
     Dosage: 8 CYCLICAL
     Route: 065
     Dates: start: 201506, end: 201512
  3. RITUXIMAB. [Concomitant]
     Active Substance: RITUXIMAB
     Indication: NON-HODGKIN^S LYMPHOMA
     Dosage: 8 CYCLICAL
     Route: 065
     Dates: start: 201506, end: 201512
  4. DIGOXIN. [Suspect]
     Active Substance: DIGOXIN
     Indication: LEFT VENTRICULAR DYSFUNCTION
     Dosage: UNK
     Route: 065
  5. IVABRADINE [Concomitant]
     Active Substance: IVABRADINE
     Indication: LEFT VENTRICULAR DYSFUNCTION
     Dosage: UNK
     Route: 065
  6. VINCRISTINE [Concomitant]
     Active Substance: VINCRISTINE
     Indication: NON-HODGKIN^S LYMPHOMA
     Dosage: 8 CYCLICAL
     Route: 065
     Dates: start: 201506, end: 201512
  7. DOXORUBICIN [Suspect]
     Active Substance: DOXORUBICIN
     Indication: NON-HODGKIN^S LYMPHOMA
     Dosage: 8 CYCLICAL
     Route: 065
     Dates: start: 201506, end: 201512
  8. LINEZOLID. [Concomitant]
     Active Substance: LINEZOLID
     Indication: LEFT VENTRICULAR DYSFUNCTION
     Dosage: UNK
     Route: 065

REACTIONS (8)
  - Mania [Recovering/Resolving]
  - Tachyphrenia [Recovering/Resolving]
  - Verbigeration [Recovered/Resolved]
  - Acute pulmonary oedema [Unknown]
  - Delusional perception [Recovering/Resolving]
  - Confusional state [Recovering/Resolving]
  - Cardiotoxicity [Unknown]
  - Insomnia [Recovered/Resolved]
